FAERS Safety Report 7631441-7 (Version None)
Quarter: 2011Q3

REPORT INFORMATION
  Report Type: 
  Country: None (occurrence: None)
  Receive Date: 20110715
  Receipt Date: 20110705
  Transmission Date: 20111222
  Serious: Yes (Other)
  Sender: FDA-Public Use
  Company Number: USA/USA/11/0018936

PATIENT
  Age: 57 Year
  Sex: Female

DRUGS (1)
  1. AUGMENTIN '875' [Suspect]
     Indication: PRODUCT USED FOR UNKNOWN INDICATION
     Dosage: 875 MG, ORAL
     Route: 048

REACTIONS (4)
  - HALLUCINATION, VISUAL [None]
  - VOMITING [None]
  - NAUSEA [None]
  - DEHYDRATION [None]
